FAERS Safety Report 21080514 (Version 3)
Quarter: 2022Q4

REPORT INFORMATION
  Report Type: Spontaneous
  Country: US (occurrence: US)
  Receive Date: 20220714
  Receipt Date: 20221031
  Transmission Date: 20230112
  Serious: No
  Sender: FDA-Public Use
  Company Number: US-RECKITT BENCKISER HEALTHCARE INT LIMITED-RB-00199-2021

PATIENT
  Age: 47 Year
  Sex: Male

DRUGS (1)
  1. MUCINEX DM MAXIMUM STRENGTH [Suspect]
     Active Substance: DEXTROMETHORPHAN HYDROBROMIDE\GUAIFENESIN
     Indication: Product used for unknown indication
     Dosage: 2 DOSAGE FORM, SINGLE
     Route: 065
     Dates: start: 20211124

REACTIONS (3)
  - Paraesthesia [Not Recovered/Not Resolved]
  - Accidental overdose [Not Recovered/Not Resolved]
  - Dizziness [Not Recovered/Not Resolved]
